FAERS Safety Report 9974913 (Version 1)
Quarter: 2014Q1

REPORT INFORMATION
  Report Type: Report from Study
  Country: US (occurrence: US)
  Receive Date: 20140306
  Receipt Date: 20140306
  Transmission Date: 20141002
  Serious: No
  Sender: FDA-Public Use
  Company Number: US-ABBVIE-13P-163-1160786-00

PATIENT
  Age: 68 Year
  Sex: Female
  Weight: 58.57 kg

DRUGS (7)
  1. HUMIRA [Suspect]
     Indication: CROHN^S DISEASE
     Dosage: ONE DOSE
     Dates: start: 20130911, end: 20130911
  2. HUMIRA [Suspect]
     Dosage: ONE DOSE
     Dates: start: 20130925, end: 20130925
  3. HUMIRA [Suspect]
     Dates: start: 20131009
  4. VITAMINS [Concomitant]
     Indication: VITAMIN SUPPLEMENTATION
  5. PENTASA [Concomitant]
     Indication: CROHN^S DISEASE
  6. SYNTHROID [Concomitant]
     Indication: HYPOTHYROIDISM
  7. SIMVASTATIN [Concomitant]
     Indication: BLOOD CHOLESTEROL INCREASED

REACTIONS (6)
  - Asthenia [Not Recovered/Not Resolved]
  - Product quality issue [Not Recovered/Not Resolved]
  - Poor quality sleep [Not Recovered/Not Resolved]
  - Arthralgia [Not Recovered/Not Resolved]
  - Injection site pain [Not Recovered/Not Resolved]
  - Drug dose omission [Not Recovered/Not Resolved]
